FAERS Safety Report 5222020-X (Version None)
Quarter: 2007Q1

REPORT INFORMATION
  Report Type: 
  Country: None (occurrence: None)
  Receive Date: 20070129
  Receipt Date: 20060405
  Transmission Date: 20070707
  Serious: No
  Sender: FDA-Public Use
  Company Number: US-GLAXOSMITHKLINE-A0600582A

PATIENT
  Age: 39 Year
  Sex: Female

DRUGS (4)
  1. WELLBUTRIN [Suspect]
     Indication: DEPRESSION
     Dosage: 100MG TWICE PER DAY
     Route: 048
     Dates: start: 20060324, end: 20060403
  2. WELLBUTRIN XL [Suspect]
     Indication: DEPRESSION
     Dosage: 150MG PER DAY
     Route: 048
     Dates: start: 20060404
  3. AMBIEN [Concomitant]
  4. ACIPHEX [Concomitant]

REACTIONS (10)
  - AFFECT LABILITY [None]
  - ANOREXIA [None]
  - ANXIETY [None]
  - DRY MOUTH [None]
  - HEART RATE INCREASED [None]
  - HYPERHIDROSIS [None]
  - INSOMNIA [None]
  - POLLAKIURIA [None]
  - TINNITUS [None]
  - TREMOR [None]
